FAERS Safety Report 12463407 (Version 1)
Quarter: 2016Q2

REPORT INFORMATION
  Report Type: Spontaneous
  Country: US (occurrence: US)
  Receive Date: 20160614
  Receipt Date: 20160614
  Transmission Date: 20160815
  Serious: Yes (Hospitalization, Other)
  Sender: FDA-Public Use
  Company Number: US-ZYDUS-011260

PATIENT
  Age: 30 Year
  Sex: Male

DRUGS (1)
  1. SIROLIMUS. [Suspect]
     Active Substance: SIROLIMUS
     Indication: IMMUNOSUPPRESSANT DRUG THERAPY
     Dosage: 1 MG ORALLY ONCE PER DAY AND 2 MG ORALLY ONCE EVERY OTHER DAY
     Route: 048

REACTIONS (6)
  - Radiation oesophagitis [Recovering/Resolving]
  - Disease progression [Recovering/Resolving]
  - Dyspepsia [Recovering/Resolving]
  - Odynophagia [Recovering/Resolving]
  - Chest pain [Recovering/Resolving]
  - Oesophageal ulcer [Recovering/Resolving]
